FAERS Safety Report 4877215-1 (Version None)
Quarter: 2005Q4

REPORT INFORMATION
  Report Type: 
  Country: None (occurrence: None)
  Receive Date: 20051206
  Receipt Date: 20050927
  Transmission Date: 20060501
  Serious: No
  Sender: FDA-Public Use
  Company Number: USA0509109410

PATIENT
  Age: 48 Year
  Sex: Female

DRUGS (1)
  1. CYMBALTA [Suspect]
     Indication: NEURALGIA
     Dosage: 30 MG/ONCE DAY
     Dates: start: 20050923

REACTIONS (4)
  - FATIGUE [None]
  - MENTAL IMPAIRMENT [None]
  - PAIN [None]
  - SOMNOLENCE [None]
